FAERS Safety Report 12248956 (Version 1)
Quarter: 2016Q2

REPORT INFORMATION
  Report Type: Spontaneous
  Country: US (occurrence: None)
  Receive Date: 20160407
  Receipt Date: 20160407
  Transmission Date: 20160815
  Serious: Yes (Life-Threatening, Hospitalization)
  Sender: FDA-Public Use
  Company Number: None

PATIENT
  Age: 21 Year
  Sex: Female
  Weight: 52.16 kg

DRUGS (2)
  1. LEVAQUIN [Suspect]
     Active Substance: LEVOFLOXACIN
     Indication: BRONCHITIS
     Dates: start: 20100612, end: 20100616
  2. CEFTIN [Suspect]
     Active Substance: CEFUROXIME AXETIL
     Indication: BRONCHITIS
     Dosage: IN THE MORNING TAKEN BY MOUTH
     Route: 048
     Dates: start: 20100610

REACTIONS (15)
  - Swelling [None]
  - Nausea [None]
  - Vomiting [None]
  - Hyperhidrosis [None]
  - Cyanosis [None]
  - Malaise [None]
  - Dizziness [None]
  - Swollen tongue [None]
  - Erythema [None]
  - Sneezing [None]
  - Diarrhoea [None]
  - Lip swelling [None]
  - Dysstasia [None]
  - Hypoaesthesia oral [None]
  - Loss of consciousness [None]

NARRATIVE: CASE EVENT DATE: 20100610
